FAERS Safety Report 7649575-X (Version None)
Quarter: 2011Q3

REPORT INFORMATION
  Report Type: 
  Country: None (occurrence: None)
  Receive Date: 20110727
  Receipt Date: 20110720
  Transmission Date: 20111222
  Serious: Yes (Hospitalization)
  Sender: FDA-Public Use
  Company Number: 1000022397

PATIENT
  Sex: Female

DRUGS (1)
  1. DALIRESP [Suspect]
     Indication: CHRONIC OBSTRUCTIVE PULMONARY DISEASE
     Dosage: 500 MG (500 MCG, 1 IN 1 D), ORAL
     Route: 048
     Dates: start: 20110101

REACTIONS (1)
  - TACHYCARDIA [None]
